FAERS Safety Report 22246881 (Version 1)
Quarter: 2023Q2

REPORT INFORMATION
  Report Type: Spontaneous
  Country: US (occurrence: US)
  Receive Date: 20230424
  Receipt Date: 20230424
  Transmission Date: 20230722
  Serious: No
  Sender: FDA-Public Use
  Company Number: US-GE HEALTHCARE-2023CSU000733

PATIENT
  Age: 67 Year

DRUGS (19)
  1. DATSCAN [Suspect]
     Active Substance: IODINE\IOFLUPANE I-123
     Indication: Product used for unknown indication
     Dosage: 173.9 MBQ (4.7 MCI), ONCE
     Route: 065
     Dates: start: 20230105, end: 20230105
  2. NEUPRO [Concomitant]
     Active Substance: ROTIGOTINE
     Dosage: ONE 4MG/24 HR PATCH, EVERY DAY
     Route: 061
  3. MYRBETRIQ [Concomitant]
     Active Substance: MIRABEGRON
     Dosage: 25 MG, QD
     Route: 048
  4. CARBIDOPA LEVODOPA [Concomitant]
     Active Substance: CARBIDOPA\LEVODOPA
     Dosage: 2 TABLET OF 50 MG-200 MG, EVERY NIGHT
     Route: 048
  5. TADALAFIL [Concomitant]
     Active Substance: TADALAFIL
     Dosage: 1 TABLET 1 HOUR BEFORE SEX
     Route: 048
  6. INBRIJA [Concomitant]
     Active Substance: LEVODOPA
     Dosage: INHALE THE CONTENT OF 2 CAPSULES 5 TIMES A DAY, AS NEEDED
     Route: 048
  7. PYRIDOSTIGMINE [Concomitant]
     Active Substance: PYRIDOSTIGMINE
     Dosage: 30 MG, TID
     Route: 048
  8. LATANOPROST [Concomitant]
     Active Substance: LATANOPROST
     Dosage: 1 DROP IN BOTH EYES EVERY NIGHT
     Route: 047
  9. ENTACAPONE [Concomitant]
     Active Substance: ENTACAPONE
     Dosage: 200 MG FOUR TIMES A DAY
     Route: 048
  10. COLACE [Concomitant]
     Active Substance: DOCUSATE SODIUM
     Dosage: 200 MG, QD
     Route: 048
  11. IBUPROFEN [Concomitant]
     Active Substance: IBUPROFEN
     Indication: Pain
     Dosage: AS NEEDED
  12. SILDENAFIL [Concomitant]
     Active Substance: SILDENAFIL
     Indication: Erectile dysfunction
     Dosage: 100 MG EVERYDAY, AS NEEDED
     Route: 048
  13. CLONAZEPAM [Concomitant]
     Active Substance: CLONAZEPAM
     Dosage: 0.5 MG, TID
     Route: 048
  14. MYRBETRIQ [Concomitant]
     Active Substance: MIRABEGRON
     Dosage: 50 MG, QD
  15. CARBIDOPA LEVODOPA [Concomitant]
     Active Substance: CARBIDOPA\LEVODOPA
     Dosage: 2 TABLET OF 25MG-100 MG EVERY 2-3 HOURS
     Route: 048
  16. FLUDROCORTISONE [Concomitant]
     Active Substance: FLUDROCORTISONE
     Dosage: 0.1 MG, QD
     Route: 048
  17. AMBIEN [Concomitant]
     Active Substance: ZOLPIDEM TARTRATE
     Dosage: 5 MG AT BEDTIME
     Route: 048
  18. FAMOTIDINE [Concomitant]
     Active Substance: FAMOTIDINE
     Dosage: 20 MG, QD
     Route: 048
  19. CHOLECALCIFEROL [Concomitant]
     Active Substance: CHOLECALCIFEROL
     Dosage: 125 MCG, QD
     Route: 048

REACTIONS (2)
  - Drug ineffective [Recovered/Resolved]
  - No adverse event [Recovered/Resolved]

NARRATIVE: CASE EVENT DATE: 20230105
